FAERS Safety Report 25357672 (Version 1)
Quarter: 2025Q2

REPORT INFORMATION
  Report Type: Spontaneous
  Country: PL (occurrence: PL)
  Receive Date: 20250526
  Receipt Date: 20250526
  Transmission Date: 20250717
  Serious: Yes (Other)
  Sender: ROCHE
  Company Number: PL-ROCHE-10000291347

PATIENT
  Age: 43 Year
  Weight: 110 kg

DRUGS (1)
  1. EMICIZUMAB [Suspect]
     Active Substance: EMICIZUMAB
     Indication: Factor VIII deficiency
     Route: 058
     Dates: start: 20170323

REACTIONS (4)
  - Erythema [Unknown]
  - Administration site pruritus [Unknown]
  - Arrhythmia [Recovering/Resolving]
  - Headache [Unknown]
